FAERS Safety Report 7553618-1 (Version None)
Quarter: 2011Q2

REPORT INFORMATION
  Report Type: 
  Country: None (occurrence: None)
  Receive Date: 20110609
  Receipt Date: 20110530
  Transmission Date: 20111010
  Serious: Yes (Death, Hospitalization)
  Sender: FDA-Public Use
  Company Number: 1000021436

PATIENT
  Sex: Female

DRUGS (2)
  1. ROFLUMILAST (ROFLUMILAST) (TABLETS) [Suspect]
     Indication: CHRONIC OBSTRUCTIVE PULMONARY DISEASE
     Dosage: 500 MCG (500 MCG,1 IN 1 D)
  2. WARAN (WARFARIN SODIUM) (WARFARIN SODIUM) [Concomitant]

REACTIONS (1)
  - VOMITING [None]
